FAERS Safety Report 8016824-8 (Version None)
Quarter: 2012Q1

REPORT INFORMATION
  Report Type: 
  Country: None (occurrence: None)
  Receive Date: 20120102
  Receipt Date: 20111222
  Transmission Date: 20120608
  Serious: Yes (Hospitalization, Other)
  Sender: FDA-Public Use
  Company Number: NO-AMGEN-NORSP2011052398

PATIENT
  Age: 44 Year
  Sex: Male

DRUGS (16)
  1. ENBREL [Suspect]
     Indication: RHEUMATOID ARTHRITIS
     Dosage: 25 MG X 2
     Dates: start: 20090901, end: 20100612
  2. ACETAMINOPHEN [Concomitant]
     Dosage: 1G, UP TO 4 TIMES DAILY
     Route: 048
     Dates: start: 20100923
  3. IMUREL                             /00001501/ [Concomitant]
     Dosage: UNK
  4. METHOTREXATE SODIUM [Suspect]
     Dosage: 15 MG, QWK
  5. HUMIRA [Suspect]
     Indication: RHEUMATOID ARTHRITIS
     Dosage: 40MG/0.8ML, IN COMBINATION WITH IMUREL
     Dates: start: 20090101, end: 20090801
  6. CETIRIZINE [Concomitant]
     Dosage: 10 MG, UNK
     Route: 048
     Dates: start: 20100923
  7. PREDNISOLONE [Concomitant]
     Dosage: UNK
  8. FOLSYRE NAF [Concomitant]
     Dosage: 1 MG, 1X/DAY
  9. FOLSYRE NAF [Concomitant]
     Dosage: 75 MG, WEEKLY
  10. IMUREL                             /00001501/ [Concomitant]
     Dosage: UNK
  11. SOLU-MEDROL [Concomitant]
     Dosage: 100 MG, UNK
     Route: 042
     Dates: start: 20100923
  12. CETIRIZINE [Concomitant]
     Dosage: 10 MG, UNK
     Route: 048
     Dates: start: 20100923
  13. CALCIGRAN FORTE [Concomitant]
     Dosage: 1000MG, EVENING
  14. CELESTONE SOLUSPAN [Concomitant]
     Indication: ARTHRITIS
     Dosage: 2 ML, UNK
     Route: 030
  15. PANTOPRAZOLE [Concomitant]
     Dosage: 20 MG, QD
  16. IBUPROFEN [Concomitant]
     Dosage: 400 MG UP TO 3 TIMES DAILY

REACTIONS (13)
  - TRISMUS [None]
  - ACTIVITIES OF DAILY LIVING IMPAIRED [None]
  - BLEPHAROSPASM [None]
  - RECTAL HAEMORRHAGE [None]
  - NECK PAIN [None]
  - PAIN IN JAW [None]
  - NAUSEA [None]
  - PYREXIA [None]
  - VOMITING [None]
  - PAIN IN EXTREMITY [None]
  - MYASTHENIA GRAVIS [None]
  - ARTHRITIS [None]
  - ARTHRALGIA [None]
